FAERS Safety Report 15347865 (Version 1)
Quarter: 2018Q3

REPORT INFORMATION
  Report Type: Spontaneous
  Country: JP (occurrence: JP)
  Receive Date: 20180904
  Receipt Date: 20180904
  Transmission Date: 20181010
  Serious: Yes (Death, Life-Threatening, Hospitalization, Other)
  Sender: FDA-Public Use
  Company Number: JP-SILVERGATE PHARMACEUTICALS, INC.-2018SIL00045

PATIENT
  Age: 83 Year
  Sex: Male

DRUGS (1)
  1. METHOTREXATE. [Suspect]
     Active Substance: METHOTREXATE
     Indication: RHEUMATOID ARTHRITIS
     Dosage: 8 MG, 1X/WEEK
     Route: 065

REACTIONS (5)
  - Cardiac arrest [Fatal]
  - Jaundice cholestatic [Recovered/Resolved]
  - Shock haemorrhagic [Not Recovered/Not Resolved]
  - Haematemesis [Not Recovered/Not Resolved]
  - Lymphoproliferative disorder [Recovering/Resolving]
